FAERS Safety Report 5521702-X (Version None)
Quarter: 2007Q4

REPORT INFORMATION
  Report Type: 
  Country: None (occurrence: None)
  Receive Date: 20071120
  Receipt Date: 20071112
  Transmission Date: 20080405
  Serious: Yes (Other)
  Sender: FDA-Public Use
  Company Number: PHBS2007TR19109

PATIENT
  Age: 58 Year
  Sex: Female

DRUGS (3)
  1. ZOLEDRONIC ACID [Suspect]
     Indication: MULTIPLE MYELOMA
     Dosage: UNK, QMO
  2. VINCRISTINE + ADRIAMYCIN + DEXAMETHASONE [Concomitant]
     Indication: MULTIPLE MYELOMA
     Dosage: 3 CYCLES
  3. MELPHALAN [Concomitant]
     Indication: MULTIPLE MYELOMA

REACTIONS (9)
  - BONE DISORDER [None]
  - FISTULA [None]
  - FISTULA DISCHARGE [None]
  - GINGIVAL HYPERPLASIA [None]
  - GINGIVAL OPERATION [None]
  - MASS [None]
  - OSTEITIS [None]
  - OSTEONECROSIS [None]
  - TOOTH EXTRACTION [None]
